FAERS Safety Report 7716357-X (Version None)
Quarter: 2011Q3

REPORT INFORMATION
  Report Type: 
  Country: None (occurrence: None)
  Receive Date: 20110816
  Receipt Date: 20110531
  Transmission Date: 20111222
  Serious: Yes (Hospitalization)
  Sender: FDA-Public Use
  Company Number: 11US002487

PATIENT
  Age: 29 Year
  Sex: Male

DRUGS (1)
  1. PEXEVA [Suspect]
     Indication: PANIC ATTACK
     Dosage: 5 MG, QD, ORAL 30 MG, QD, ORAL
     Route: 048
     Dates: end: 20110518

REACTIONS (6)
  - ANGER [None]
  - DIARRHOEA [None]
  - INFLUENZA LIKE ILLNESS [None]
  - CARDIAC FAILURE CONGESTIVE [None]
  - IMPATIENCE [None]
  - MALAISE [None]
